FAERS Safety Report 14223621 (Version 1)
Quarter: 2017Q4

REPORT INFORMATION
  Report Type: Report from Study
  Country: DO (occurrence: DO)
  Receive Date: 20171124
  Receipt Date: 20171124
  Transmission Date: 20180321
  Serious: Yes (Other)
  Sender: FDA-Public Use
  Company Number: PHHY2017DO172952

PATIENT
  Age: 79 Year
  Sex: Female

DRUGS (1)
  1. DIOVAN [Suspect]
     Active Substance: VALSARTAN
     Indication: PRODUCT USED FOR UNKNOWN INDICATION
     Dosage: 320 MG, UNK (MORE THAN 8 YEARS)
     Route: 065

REACTIONS (6)
  - Speech disorder [Unknown]
  - Thrombosis [Unknown]
  - Hemiparesis [Unknown]
  - Movement disorder [Unknown]
  - Parkinson^s disease [Unknown]
  - Throat tightness [Unknown]
